FAERS Safety Report 21928721 (Version 1)
Quarter: 2023Q1

REPORT INFORMATION
  Report Type: Other
  Country: JP (occurrence: JP)
  Receive Date: 20230131
  Receipt Date: 20230131
  Transmission Date: 20230418
  Serious: Yes (Other)
  Sender: FDA-Public Use
  Company Number: JP-CHUGAI-2022000547

PATIENT
  Age: 71 Year
  Sex: Male

DRUGS (14)
  1. TECENTRIQ [Suspect]
     Active Substance: ATEZOLIZUMAB
     Indication: Small cell lung cancer
     Dosage: ON THE FIRST DAY
     Route: 041
  2. TECENTRIQ [Suspect]
     Active Substance: ATEZOLIZUMAB
     Indication: Neuroendocrine carcinoma of the bladder
  3. TECENTRIQ [Suspect]
     Active Substance: ATEZOLIZUMAB
     Indication: Bladder cancer
  4. CARBOPLATIN [Suspect]
     Active Substance: CARBOPLATIN
     Indication: Small cell lung cancer
     Dosage: AREA UNDER THE CURVE, 5 MG MIN/ML ON THE FIRST DAY
     Route: 041
  5. CARBOPLATIN [Suspect]
     Active Substance: CARBOPLATIN
     Indication: Neuroendocrine carcinoma of the bladder
  6. CARBOPLATIN [Suspect]
     Active Substance: CARBOPLATIN
     Indication: Bladder cancer
  7. ETOPOSIDE [Suspect]
     Active Substance: ETOPOSIDE
     Indication: Small cell lung cancer
     Dosage: FROM THE FIRST THROUGH THE THIRD DAY
     Route: 041
  8. ETOPOSIDE [Suspect]
     Active Substance: ETOPOSIDE
     Indication: Neuroendocrine carcinoma of the bladder
  9. ETOPOSIDE [Suspect]
     Active Substance: ETOPOSIDE
     Indication: Bladder cancer
  10. PALONOSETRON [Concomitant]
     Active Substance: PALONOSETRON
     Dosage: ON THE FIRST DAY
     Route: 042
  11. DEXAMETHASONE [Concomitant]
     Active Substance: DEXAMETHASONE
     Dosage: FROM THE FIRST THROUGH THE THIRD DAY
     Route: 042
  12. APREPITANT [Concomitant]
     Active Substance: APREPITANT
     Dosage: ON THE FIRST DAY
     Route: 048
  13. APREPITANT [Concomitant]
     Active Substance: APREPITANT
     Dosage: ON THE SECOND AND THIRD DAY
     Route: 048
  14. METOCLOPRAMIDE [Concomitant]
     Active Substance: METOCLOPRAMIDE
     Dosage: FROM THE THIRD THROUGH THE SEVENTH DAY

REACTIONS (2)
  - Neutropenia [Recovered/Resolved]
  - Off label use [Unknown]
